FAERS Safety Report 9279204 (Version 2)
Quarter: 2013Q2

REPORT INFORMATION
  Report Type: Spontaneous
  Country: DE (occurrence: DE)
  Receive Date: 20130508
  Receipt Date: 20130510
  Transmission Date: 20140414
  Serious: Yes (Hospitalization)
  Sender: FDA-Public Use
  Company Number: DE-TEVA-403381ISR

PATIENT
  Age: 61 Year
  Sex: Female
  Weight: 54.2 kg

DRUGS (3)
  1. CARBOPLATIN [Suspect]
     Indication: OVARIAN CANCER
     Dosage: 620 MILLIGRAM DAILY; DATE OF LAST DOSE PRIOR TO SAE: 29-JUN-2012, DAILY DOSE OF 620 MG (AUC: 5)
     Route: 042
     Dates: start: 20120316, end: 20130125
  2. PACLITAXEL [Suspect]
     Indication: OVARIAN CANCER
     Dosage: 270 MILLIGRAM DAILY; DATE OF LAST DOSE PRIOR TO SAE: 29-JUN-2012, DAILY DOSE OF 270 MG (175 MG/SQ.M)
     Route: 042
     Dates: start: 20120316, end: 20130125
  3. BEVACIZUMAB [Suspect]
     Indication: OVARIAN CANCER
     Dosage: 830 MILLIGRAM DAILY; DATE OF LAST DOSE PRIOR TO SAE: 04-JAN-2013, DAILY DOSE OF 15 MG/KG (830 MG)
     Route: 042
     Dates: start: 20120405, end: 20130125

REACTIONS (1)
  - Ileus [Recovered/Resolved]
